FAERS Safety Report 5104213-5 (Version None)
Quarter: 2006Q3

REPORT INFORMATION
  Report Type: 
  Country: None (occurrence: None)
  Receive Date: 20060911
  Receipt Date: 20060824
  Transmission Date: 20061208
  Serious: Yes (Hospitalization)
  Sender: FDA-Public Use
  Company Number: T06-SWI-02397-01

PATIENT
  Age: 22 Year
  Sex: Male

DRUGS (3)
  1. CIPRALEX (ESCITALOPRAM) [Suspect]
     Indication: DEPRESSED MOOD
     Dosage: 10 MG QD PO
     Route: 048
     Dates: start: 20040101
  2. SEROQUEL [Suspect]
     Indication: SCHIZOPHRENIA
     Dosage: 600 MG QD PO
     Route: 048
     Dates: start: 20060101
  3. TEGRETOL [Suspect]
     Indication: EPILEPSY
     Dosage: 400 MG QD PO
     Route: 048
     Dates: start: 20060101

REACTIONS (5)
  - BLOOD SODIUM ABNORMAL [None]
  - EPILEPSY [None]
  - GRAND MAL CONVULSION [None]
  - SCHIZOPHRENIA [None]
  - TREATMENT NONCOMPLIANCE [None]
